FAERS Safety Report 4469373-8 (Version None)
Quarter: 2004Q4

REPORT INFORMATION
  Report Type: 
  Country: None (occurrence: None)
  Receive Date: 20041008
  Receipt Date: 20040325
  Transmission Date: 20050328
  Serious: No
  Sender: FDA-Public Use
  Company Number: US-BRISTOL-MYERS SQUIBB COMPANY-12543260

PATIENT
  Sex: Male

DRUGS (2)
  1. AVAPRO [Suspect]
  2. DIOVAN [Concomitant]

REACTIONS (1)
  - SEXUAL DYSFUNCTION [None]
